FAERS Safety Report 17816887 (Version 1)
Quarter: 2020Q2

REPORT INFORMATION
  Report Type: Spontaneous
  Country: US (occurrence: US)
  Receive Date: 20200522
  Receipt Date: 20200522
  Transmission Date: 20200714
  Serious: No
  Sender: FDA-Public Use
  Company Number: US-FDC LIMITED-2020RIS00030

PATIENT
  Age: 71 Year
  Sex: Male
  Weight: 88.44 kg

DRUGS (4)
  1. HYDROCHLOROTHIAZIDE. [Concomitant]
     Active Substance: HYDROCHLOROTHIAZIDE
     Dosage: 25 MG, 1X/DAY
  2. TIMOLOL MALEATE. [Suspect]
     Active Substance: TIMOLOL MALEATE
     Dosage: 1 DROP, 1X/DAY ^IN EACH EYE^
     Route: 047
     Dates: start: 202001, end: 20200123
  3. TIMOLOL MALEATE. [Suspect]
     Active Substance: TIMOLOL MALEATE
     Indication: INTRAOCULAR PRESSURE TEST ABNORMAL
     Dosage: 1 DROP, 1X/DAY ^IN EACH EYE^
     Route: 047
     Dates: start: 2000, end: 202001
  4. AMLODIPINE [Concomitant]
     Active Substance: AMLODIPINE BESYLATE
     Dosage: 100 MG, 1X/DAY

REACTIONS (3)
  - Eye pain [Not Recovered/Not Resolved]
  - Eye irritation [Not Recovered/Not Resolved]
  - Foreign body sensation in eyes [Not Recovered/Not Resolved]

NARRATIVE: CASE EVENT DATE: 202001
